FAERS Safety Report 18307128 (Version 2)
Quarter: 2020Q3

REPORT INFORMATION
  Report Type: Spontaneous
  Country: ES (occurrence: ES)
  Receive Date: 20200924
  Receipt Date: 20200929
  Transmission Date: 20201103
  Serious: Yes (Hospitalization, Other)
  Sender: FDA-Public Use
  Company Number: ES-009507513-2009ESP006626

PATIENT
  Age: 60 Year
  Sex: Female
  Weight: 65 kg

DRUGS (10)
  1. PREDNISONE. [Suspect]
     Active Substance: PREDNISONE
     Indication: URTICARIAL VASCULITIS
     Dosage: 60 MILLIGRAM, QD
     Route: 048
     Dates: start: 2014
  2. PREDNISONE. [Suspect]
     Active Substance: PREDNISONE
     Dosage: REDUCED TO BELOW 10 MG/D
     Route: 048
  3. PREDNISONE. [Suspect]
     Active Substance: PREDNISONE
     Dosage: 15 MILLIGRAM, QD
     Route: 048
     Dates: start: 2014, end: 2016
  4. BETAMETHASONE ACETATE (+) BETAMETHASONE SODIUM PHOSPHATE [Suspect]
     Active Substance: BETAMETHASONE ACETATE\BETAMETHASONE SODIUM PHOSPHATE
     Indication: URTICARIAL VASCULITIS
     Dosage: UNK
     Route: 030
     Dates: end: 2016
  5. PREDNISONE. [Suspect]
     Active Substance: PREDNISONE
     Dosage: 10?15 MILLIGRAM, QD
     Route: 048
  6. DAPSONE. [Concomitant]
     Active Substance: DAPSONE
     Indication: URTICARIAL VASCULITIS
     Dosage: 100 MILLIGRAM, QD
  7. LEVOCETIRIZINE [Concomitant]
     Active Substance: LEVOCETIRIZINE
     Indication: ANTIALLERGIC THERAPY
  8. LEVOCETIRIZINE [Concomitant]
     Active Substance: LEVOCETIRIZINE
     Indication: URTICARIAL VASCULITIS
     Dosage: UNK
     Dates: start: 2014
  9. PREDNISONE. [Suspect]
     Active Substance: PREDNISONE
     Dosage: 10?15 MILLIGRAM, QD
     Route: 048
  10. AZATHIOPRINE. [Concomitant]
     Active Substance: AZATHIOPRINE
     Indication: URTICARIAL VASCULITIS
     Dosage: 150 MILLIGRAM, QD

REACTIONS (6)
  - Intraocular pressure increased [Recovered/Resolved]
  - Cushingoid [Recovered/Resolved]
  - Steroid diabetes [Recovered/Resolved]
  - Myalgia [Recovered/Resolved]
  - Weight increased [Recovering/Resolving]
  - Hyperosmolar state [Recovered/Resolved]
